FAERS Safety Report 12555260 (Version 1)
Quarter: 2016Q3

REPORT INFORMATION
  Report Type: Spontaneous
  Country: US (occurrence: US)
  Receive Date: 20160714
  Receipt Date: 20160714
  Transmission Date: 20161109
  Serious: Yes (Hospitalization, Disabling)
  Sender: FDA-Public Use
  Company Number: US-JNJFOC-20160706025

PATIENT
  Age: 69 Year
  Sex: Female
  Weight: 83.2 kg

DRUGS (12)
  1. TRAZODONE [Suspect]
     Active Substance: TRAZODONE HYDROCHLORIDE
     Indication: DEPRESSION
     Route: 048
     Dates: start: 20150101
  2. XARELTO [Suspect]
     Active Substance: RIVAROXABAN
     Indication: EMBOLISM
     Route: 048
     Dates: start: 20160517
  3. RITALIN [Suspect]
     Active Substance: METHYLPHENIDATE HYDROCHLORIDE
     Indication: FATIGUE
     Route: 048
     Dates: start: 20160411
  4. SUTENT [Suspect]
     Active Substance: SUNITINIB MALATE
     Indication: SALIVARY GLAND CANCER
     Route: 048
     Dates: start: 20160411, end: 20160509
  5. LEVOTHYROXINE SODIUM. [Suspect]
     Active Substance: LEVOTHYROXINE SODIUM
     Indication: HYPOTHYROIDISM
     Route: 048
     Dates: start: 19900101
  6. LIPITOR [Suspect]
     Active Substance: ATORVASTATIN CALCIUM
     Indication: HYPERLIPIDAEMIA
     Route: 048
     Dates: start: 20130101
  7. PHENERGAN [Suspect]
     Active Substance: PROMETHAZINE HYDROCHLORIDE
     Indication: NAUSEA
     Route: 048
     Dates: start: 20160516
  8. AMLODIPINE BESILATE [Suspect]
     Active Substance: AMLODIPINE BESYLATE
     Indication: HYPERTENSION
     Route: 048
     Dates: start: 20120101
  9. SUTENT [Suspect]
     Active Substance: SUNITINIB MALATE
     Indication: SALIVARY GLAND CANCER
     Route: 048
     Dates: start: 20160523, end: 20160602
  10. ZOLOFT [Suspect]
     Active Substance: SERTRALINE HYDROCHLORIDE
     Indication: DEPRESSION
     Route: 048
     Dates: start: 20150101
  11. BUPROPION. [Suspect]
     Active Substance: BUPROPION
     Indication: DEPRESSION
     Route: 048
     Dates: start: 20151001
  12. ZOFRAN [Suspect]
     Active Substance: ONDANSETRON HYDROCHLORIDE
     Indication: NAUSEA
     Route: 048
     Dates: start: 20160516

REACTIONS (3)
  - Mouth haemorrhage [Unknown]
  - Sinus bradycardia [Recovered/Resolved with Sequelae]
  - Bundle branch block right [Unknown]

NARRATIVE: CASE EVENT DATE: 20160602
